FAERS Safety Report 4279339-9 (Version None)
Quarter: 2004Q1

REPORT INFORMATION
  Report Type: 
  Country: None (occurrence: None)
  Receive Date: 20040123
  Receipt Date: 20040115
  Transmission Date: 20041129
  Serious: Yes (Death, Life-Threatening)
  Sender: FDA-Public Use
  Company Number: PERC20040001

PATIENT
  Age: 38 Year
  Sex: Female

DRUGS (2)
  1. PERCOCET [Suspect]
     Indication: PAIN
  2. PROPOXYPHENE HCL [Suspect]
     Indication: PAIN

REACTIONS (9)
  - COLITIS ISCHAEMIC [None]
  - CORONARY ARTERY EMBOLISM [None]
  - PULMONARY CONGESTION [None]
  - PULMONARY EMBOLISM [None]
  - PULMONARY GRANULOMA [None]
  - PULMONARY OEDEMA [None]
  - SUDDEN DEATH [None]
  - THROMBOSIS [None]
  - VASCULITIS [None]
